FAERS Safety Report 9780392 (Version 2)
Quarter: 2014Q3

REPORT INFORMATION
  Report Type: Report from Study
  Country: US (occurrence: US)
  Receive Date: 20131224
  Receipt Date: 20140915
  Transmission Date: 20150326
  Serious: Yes (Hospitalization)
  Sender: FDA-Public Use
  Company Number: US-BIOGENIDEC-2013BI122900

PATIENT
  Age: 60 Year
  Sex: Female

DRUGS (4)
  1. AVONEX [Suspect]
     Active Substance: INTERFERON BETA-1A
     Indication: MULTIPLE SCLEROSIS
     Route: 030
  2. REBIF [Concomitant]
     Active Substance: INTERFERON BETA-1A
  3. AVONEX [Suspect]
     Active Substance: INTERFERON BETA-1A
     Indication: MULTIPLE SCLEROSIS
     Route: 030
     Dates: start: 20030916, end: 20080628
  4. AVONEX [Suspect]
     Active Substance: INTERFERON BETA-1A
     Indication: MULTIPLE SCLEROSIS
     Route: 030
     Dates: start: 20080801

REACTIONS (13)
  - Nuclear magnetic resonance imaging abnormal [Unknown]
  - Incorrect dose administered [Not Recovered/Not Resolved]
  - General physical health deterioration [Recovered/Resolved]
  - Mass [Unknown]
  - General symptom [Unknown]
  - Fall [Recovered/Resolved]
  - Arachnoid cyst [Unknown]
  - Prescribed overdose [Unknown]
  - Anxiety [Unknown]
  - Sphincter of Oddi dysfunction [Not Recovered/Not Resolved]
  - Fear [Unknown]
  - Stress [Recovered/Resolved]
  - Multiple sclerosis relapse [Recovered/Resolved]

NARRATIVE: CASE EVENT DATE: 2003
